FAERS Safety Report 18548001 (Version 3)
Quarter: 2021Q1

REPORT INFORMATION
  Report Type: Spontaneous
  Country: JP (occurrence: JP)
  Receive Date: 20201126
  Receipt Date: 20210111
  Transmission Date: 20210419
  Serious: Yes (Hospitalization, Other)
  Sender: FDA-Public Use
  Company Number: JP-JNJFOC-20201129969

PATIENT
  Age: 94 Year
  Sex: Male

DRUGS (3)
  1. NITRAZEPAM [Concomitant]
     Active Substance: NITRAZEPAM
  2. XARELTO [Suspect]
     Active Substance: RIVAROXABAN
     Indication: ATRIAL FIBRILLATION
     Dosage: DAILY DOSE 10MG
     Route: 048
     Dates: end: 20201210
  3. MEMANTINE HYDROCHLORIDE. [Concomitant]
     Active Substance: MEMANTINE HYDROCHLORIDE

REACTIONS (2)
  - Delirium [Unknown]
  - Dementia [Unknown]

NARRATIVE: CASE EVENT DATE: 2020
